FAERS Safety Report 11459842 (Version 1)
Quarter: 2015Q3

REPORT INFORMATION
  Report Type: Spontaneous
  Country: FR (occurrence: FR)
  Receive Date: 20150904
  Receipt Date: 20150904
  Transmission Date: 20151125
  Serious: Yes (Hospitalization)
  Sender: FDA-Public Use
  Company Number: FR-BAYER-2015-406957

PATIENT
  Age: 75 Year
  Sex: Male

DRUGS (3)
  1. CIFLOX [Interacting]
     Active Substance: CIPROFLOXACIN
     Indication: CELLULITIS
     Dosage: UNK
     Route: 048
     Dates: start: 201503, end: 20150404
  2. PREVISCAN [Interacting]
     Active Substance: FLUINDIONE
     Dosage: UNK
     Route: 048
     Dates: end: 20150406
  3. ORBENINE [Suspect]
     Active Substance: CLOXACILLIN SODIUM
     Indication: CELLULITIS
     Dosage: UNK
     Route: 048
     Dates: start: 201503, end: 20150404

REACTIONS (3)
  - Anaemia [Recovered/Resolved]
  - Epistaxis [Recovered/Resolved]
  - International normalised ratio increased [Recovered/Resolved]

NARRATIVE: CASE EVENT DATE: 20150406
